FAERS Safety Report 21045328 (Version 1)
Quarter: 2022Q3

REPORT INFORMATION
  Report Type: Spontaneous
  Country: BE (occurrence: BE)
  Receive Date: 20220706
  Receipt Date: 20220706
  Transmission Date: 20221027
  Serious: Yes (Death, Hospitalization)
  Sender: FDA-Public Use
  Company Number: BE-STRIDES ARCOLAB LIMITED-2022SP008275

PATIENT
  Age: 56 Year
  Sex: Female

DRUGS (7)
  1. PREDNISOLONE [Suspect]
     Active Substance: PREDNISOLONE
     Indication: Antisynthetase syndrome
     Dosage: 80 MILLIGRAM PER DAY
     Route: 065
     Dates: start: 2020, end: 2020
  2. METHYLPREDNISOLONE [Suspect]
     Active Substance: METHYLPREDNISOLONE
     Indication: Respiratory distress
     Dosage: 80 MILLIGRAM PER DAY
     Route: 042
     Dates: start: 2020, end: 2020
  3. METHYLPREDNISOLONE [Suspect]
     Active Substance: METHYLPREDNISOLONE
     Indication: Acute respiratory distress syndrome
     Dosage: 125 MILLIGRAM (DURING THREE DAYS, FOLLOWED BY SLOW DOSE TAPERING)
     Route: 042
     Dates: start: 2020, end: 2020
  4. METHYLPREDNISOLONE [Suspect]
     Active Substance: METHYLPREDNISOLONE
     Indication: Antisynthetase syndrome
     Dosage: 1 GRAM PER DAY
     Route: 065
     Dates: start: 2020, end: 2020
  5. CYCLOPHOSPHAMIDE [Suspect]
     Active Substance: CYCLOPHOSPHAMIDE
     Indication: Antisynthetase syndrome
     Dosage: 15 MILLIGRAM/KILOGRAM, UNKNOWN
     Route: 065
     Dates: start: 2020, end: 2020
  6. NITRIC OXIDE [Concomitant]
     Active Substance: NITRIC OXIDE
     Indication: Acute respiratory distress syndrome
     Dosage: UNK (ROUTE OF ADMINISTRATION: INHALATION)
  7. HYDROXYCHLOROQUINE [Concomitant]
     Active Substance: HYDROXYCHLOROQUINE
     Indication: Product used for unknown indication
     Dosage: UNK
     Route: 065

REACTIONS (1)
  - Drug ineffective [Fatal]

NARRATIVE: CASE EVENT DATE: 20200101
